FAERS Safety Report 6016911-X (Version None)
Quarter: 2008Q4

REPORT INFORMATION
  Report Type: 
  Country: None (occurrence: None)
  Receive Date: 20081219
  Receipt Date: 20081211
  Transmission Date: 20090506
  Serious: Yes (Disabling)
  Sender: FDA-Public Use
  Company Number: 2008SP015261

PATIENT
  Age: 59 Year
  Sex: Female
  Weight: 52 kg

DRUGS (9)
  1. PEG-INTRON [Suspect]
     Indication: HEPATITIS C
     Dosage: 80 MCG; QW; SC
     Route: 058
     Dates: start: 20080105, end: 20080614
  2. REBETOL [Suspect]
     Indication: HEPATITIS C
     Dosage: 600 MG; QD; PO, 400 MG; QD; PO
     Route: 048
     Dates: start: 20080105, end: 20080118
  3. REBETOL [Suspect]
     Indication: HEPATITIS C
     Dosage: 600 MG; QD; PO, 400 MG; QD; PO
     Route: 048
     Dates: start: 20080119, end: 20080618
  4. GASTER D [Concomitant]
  5. THEOLONG [Concomitant]
  6. NORVASC [Concomitant]
  7. HALCION [Concomitant]
  8. MEVALOTIN [Concomitant]
  9. ISOMENYL [Concomitant]

REACTIONS (3)
  - DYSGEUSIA [None]
  - PRURITUS GENERALISED [None]
  - RHEUMATOID ARTHRITIS [None]
